FAERS Safety Report 9048480 (Version 1)
Quarter: 2013Q1

REPORT INFORMATION
  Report Type: Spontaneous
  Country: US (occurrence: None)
  Receive Date: 20130130
  Receipt Date: 20130130
  Transmission Date: 20140127
  Serious: Yes (Hospitalization)
  Sender: FDA-Public Use
  Company Number: None

PATIENT
  Age: 71 Year
  Sex: Male
  Weight: 104.9 kg

DRUGS (7)
  1. PRAZOSIN [Suspect]
     Indication: BENIGN PROSTATIC HYPERPLASIA
     Dosage: RECENT
     Route: 048
  2. ALPRAZOLAM [Suspect]
     Indication: ANXIETY
     Dosage: CHRONIC
     Route: 048
  3. SYNTHROID [Concomitant]
  4. GABAPENTIN [Concomitant]
  5. WARFARIN [Concomitant]
  6. ALPRAZOLAM [Concomitant]
  7. CYMBALTA [Concomitant]

REACTIONS (8)
  - Fall [None]
  - Somnolence [None]
  - Mental status changes [None]
  - Delirium [None]
  - Toxic encephalopathy [None]
  - Nightmare [None]
  - Speech disorder [None]
  - Excessive eye blinking [None]
